FAERS Safety Report 6783919-6 (Version None)
Quarter: 2010Q2

REPORT INFORMATION
  Report Type: 
  Country: None (occurrence: None)
  Receive Date: 20100622
  Receipt Date: 20100616
  Transmission Date: 20101027
  Serious: Yes (Other)
  Sender: FDA-Public Use
  Company Number: GB-PFIZER INC-2010075687

PATIENT
  Age: 18 Year
  Sex: Female

DRUGS (1)
  1. DEPO-PROVERA [Suspect]
     Dosage: UNK
     Dates: start: 20100324

REACTIONS (3)
  - ARTHRALGIA [None]
  - HYPERSENSITIVITY [None]
  - RASH [None]
